FAERS Safety Report 9845304 (Version 1)
Quarter: 2014Q1

REPORT INFORMATION
  Report Type: Spontaneous
  Country: US (occurrence: US)
  Receive Date: 20140127
  Receipt Date: 20140127
  Transmission Date: 20141002
  Serious: No
  Sender: FDA-Public Use
  Company Number: US-BAUSCH-BL-2013-004159

PATIENT
  Age: 57 Year
  Sex: Female

DRUGS (4)
  1. ZYLET (LOTEPREDNOL ETABONATE 0.5% AND TOBRAMYCIN 0.3% OPHTHALMIC SUSPE [Suspect]
     Indication: EYE SWELLING
     Dosage: 1 DROP; TWICE A DAY; RIGHT EYE
     Route: 047
     Dates: start: 20130705, end: 20130705
  2. ZYLET (LOTEPREDNOL ETABONATE 0.5% AND TOBRAMYCIN 0.3% OPHTHALMIC SUSPE [Suspect]
     Dosage: 1 DROP; TWICE A DAY; LEFT EYE
     Route: 047
     Dates: start: 20130705, end: 20130705
  3. ZYLET (LOTEPREDNOL ETABONATE 0.5% AND TOBRAMYCIN 0.3% OPHTHALMIC SUSPE [Suspect]
     Dosage: 1 DROP; FOUR TIMES A DAY; RIGHT EYE
     Route: 047
     Dates: start: 20130707, end: 20130707
  4. ZYLET (LOTEPREDNOL ETABONATE 0.5% AND TOBRAMYCIN 0.3% OPHTHALMIC SUSPE [Suspect]
     Dosage: 1 DROP; FOUR TIMES A DAY; LEFT EYE
     Route: 047
     Dates: start: 20130707, end: 20130707

REACTIONS (3)
  - Eye swelling [Recovered/Resolved]
  - Eye pain [Recovered/Resolved]
  - Condition aggravated [Recovered/Resolved]
